FAERS Safety Report 10400118 (Version 3)
Quarter: 2014Q3

REPORT INFORMATION
  Report Type: Spontaneous
  Country: BR (occurrence: BR)
  Receive Date: 20140821
  Receipt Date: 20140902
  Transmission Date: 20150326
  Serious: Yes (Other)
  Sender: FDA-Public Use
  Company Number: BR-PFIZER INC-2014231169

PATIENT
  Sex: Female

DRUGS (4)
  1. CHAMPIX [Suspect]
     Active Substance: VARENICLINE TARTRATE
     Dosage: 1 MG, EVERY 12 HOURS
     Route: 048
     Dates: start: 201408, end: 201408
  2. CHAMPIX [Suspect]
     Active Substance: VARENICLINE TARTRATE
     Dosage: 2 TABLETS - 1 IN THE MORNING AND 1 AT NIGHT
     Route: 048
     Dates: start: 201408
  3. RIVOTRIL [Concomitant]
     Active Substance: CLONAZEPAM
     Indication: SLEEP DISORDER
     Dosage: UNK
     Dates: end: 201408
  4. CHAMPIX [Suspect]
     Active Substance: VARENICLINE TARTRATE
     Indication: SMOKING CESSATION THERAPY
     Dosage: UNK
     Route: 048
     Dates: start: 20140811, end: 201408

REACTIONS (11)
  - Feeling abnormal [Recovered/Resolved]
  - Palpitations [Recovered/Resolved]
  - Tobacco user [Recovered/Resolved]
  - Negative thoughts [Recovered/Resolved]
  - Agitation [Recovering/Resolving]
  - Thinking abnormal [Recovering/Resolving]
  - Hypersomnia [Recovered/Resolved]
  - Intentional product misuse [Not Recovered/Not Resolved]
  - Depression [Recovered/Resolved]
  - Nausea [Recovering/Resolving]
  - Nervousness [Recovering/Resolving]

NARRATIVE: CASE EVENT DATE: 201408
